FAERS Safety Report 10224370 (Version 1)
Quarter: 2014Q2

REPORT INFORMATION
  Report Type: Spontaneous
  Country: US (occurrence: None)
  Receive Date: 20140605
  Receipt Date: 20140605
  Transmission Date: 20141212
  Serious: Yes (Hospitalization)
  Sender: FDA-Public Use
  Company Number: UTC-048455

PATIENT
  Age: 49 Year
  Sex: Female
  Weight: 79.4 kg

DRUGS (4)
  1. REMODULIN [Suspect]
     Indication: COR PULMONALE CHRONIC
     Route: 041
     Dates: start: 20090619
  2. ADCIRCA (TADALAFIL) [Concomitant]
  3. LETAIRIS (AMBRISENTAN) [Concomitant]
  4. FLOLAN (EPOPROSTENOL SODIUM) [Concomitant]

REACTIONS (2)
  - Device dislocation [None]
  - Drug dose omission [None]
